FAERS Safety Report 23692788 (Version 1)
Quarter: 2024Q1

REPORT INFORMATION
  Report Type: Spontaneous
  Country: US (occurrence: None)
  Receive Date: 20240330
  Receipt Date: 20240330
  Transmission Date: 20240409
  Serious: Yes (Other)
  Sender: FDA-Public Use
  Company Number: None

PATIENT
  Age: 73 Year
  Sex: Female
  Weight: 68.49 kg

DRUGS (1)
  1. TRELEGY ELLIPTA [Suspect]
     Active Substance: FLUTICASONE FUROATE\UMECLIDINIUM BROMIDE\VILANTEROL TRIFENATATE
     Indication: Chronic obstructive pulmonary disease
     Dosage: ??1 PUFF ICE DAY BY MOUTH ?
     Dates: start: 20200417, end: 20240129

REACTIONS (10)
  - Neuropathy peripheral [None]
  - Alopecia [None]
  - Headache [None]
  - Choking [None]
  - Insomnia [None]
  - Family stress [None]
  - Stomatitis [None]
  - Oropharyngeal pain [None]
  - Dysphonia [None]
  - Dysuria [None]

NARRATIVE: CASE EVENT DATE: 20230101
